FAERS Safety Report 18927385 (Version 1)
Quarter: 2021Q1

REPORT INFORMATION
  Report Type: Spontaneous
  Country: US (occurrence: US)
  Receive Date: 20210222
  Receipt Date: 20210222
  Transmission Date: 20210420
  Serious: Yes (Life-Threatening, Hospitalization, Disabling)
  Sender: FDA-Public Use
  Company Number: None

PATIENT
  Age: 66 Year
  Sex: Male
  Weight: 75.6 kg

DRUGS (6)
  1. METOPROLOL 25MG [Concomitant]
     Active Substance: METOPROLOL
  2. NORVASC [Concomitant]
     Active Substance: AMLODIPINE BESYLATE
  3. VALIUM [Suspect]
     Active Substance: DIAZEPAM
     Indication: PRODUCT USED FOR UNKNOWN INDICATION
     Dosage: ?          QUANTITY:1 TABLET(S);?
     Route: 048
  4. ASPIRIN (LOW DOSE) [Concomitant]
  5. PERCOCET [Concomitant]
     Active Substance: ACETAMINOPHEN\OXYCODONE HYDROCHLORIDE
  6. EMERGEN?C POWDER [Concomitant]

REACTIONS (6)
  - Feeling abnormal [None]
  - Unevaluable event [None]
  - Insomnia [None]
  - Fall [None]
  - Aortic aneurysm [None]
  - Withdrawal syndrome [None]

NARRATIVE: CASE EVENT DATE: 20180418
